FAERS Safety Report 19952093 (Version 1)
Quarter: 2021Q4

REPORT INFORMATION
  Report Type: Spontaneous
  Country: GB (occurrence: GB)
  Receive Date: 20211013
  Receipt Date: 20211013
  Transmission Date: 20220303
  Serious: Yes (Life-Threatening)
  Sender: FDA-Public Use
  Company Number: None

PATIENT
  Age: 68 Year
  Sex: Male
  Weight: 97 kg

DRUGS (19)
  1. RAMIPRIL [Suspect]
     Active Substance: RAMIPRIL
     Indication: Product used for unknown indication
     Dosage: 2.5 MILLIGRAM
     Dates: start: 20211006
  2. ASPIRIN [Concomitant]
     Active Substance: ASPIRIN
     Dosage: 1 DOSAGE FORM, QD
     Dates: start: 20210625
  3. ATORVASTATIN [Concomitant]
     Active Substance: ATORVASTATIN
     Dosage: 1 DOSAGE FORM, QD
     Dates: start: 20210625
  4. COCODAMOL [Concomitant]
     Active Substance: ACETAMINOPHEN\CODEINE PHOSPHATE
     Dosage: 1 OR 2 TABLETS 4 TIMES/DAY - DO NOT TAKE WITH P...
     Dates: start: 20210625
  5. DICLOFENAC DIETHYLAMINE [Concomitant]
     Active Substance: DICLOFENAC DIETHYLAMINE
     Dosage: 1 DOSAGE FORM, BID
     Dates: start: 20210928
  6. DOXYCYCLINE [Concomitant]
     Active Substance: DOXYCYCLINE
     Indication: Chronic obstructive pulmonary disease
     Dosage: TAKE TWO NOW THEN TAKE ONE DAILY FOR 14 DAYS
     Dates: start: 20210625
  7. CHOLECALCIFEROL [Concomitant]
     Active Substance: CHOLECALCIFEROL
     Dosage: 1 DOSAGE FORM, QD
     Dates: start: 20210625
  8. GABAPENTIN [Concomitant]
     Active Substance: GABAPENTIN
     Dosage: 1 DOSAGE FORM, TID
     Dates: start: 20210625
  9. IBUPROFEN [Concomitant]
     Active Substance: IBUPROFEN
     Dosage: AS DIRECTED.
     Dates: start: 20210731, end: 20210925
  10. LORATADINE [Concomitant]
     Active Substance: LORATADINE
     Dosage: 1 DOSAGE FORM, QD
     Dates: start: 20210625
  11. MOMETASONE [Concomitant]
     Active Substance: MOMETASONE
     Dosage: SPRAY TWO PUFFS INTO EACH NOSTRIL ONCE DAILY, D...
     Dates: start: 20210716, end: 20210815
  12. OMEPRAZOLE [Concomitant]
     Active Substance: OMEPRAZOLE
     Dosage: 1 DOSAGE FORM, BID
     Dates: start: 20210625
  13. PHYLLOCONTIN [Concomitant]
     Active Substance: AMINOPHYLLINE
     Dosage: AS PER RESP LETTER 17/7/2017.
     Dates: start: 20210625
  14. PREDNISOLONE [Concomitant]
     Active Substance: PREDNISOLONE
     Dosage: 6 A DAY FOR 5 DAYS **RESCUE PACK**
     Dates: start: 20210625
  15. RAMIPRIL [Concomitant]
     Active Substance: RAMIPRIL
     Dosage: 1 DOSAGE FORM, QD
     Dates: start: 20210625
  16. ALBUTEROL [Concomitant]
     Active Substance: ALBUTEROL
     Dosage: UNK, PRN (AS DIRECTED)
     Dates: start: 20210625
  17. SILDENAFIL [Concomitant]
     Active Substance: SILDENAFIL
     Dosage: TAKE ONE AS DIRECTED
     Dates: start: 20210625
  18. BECLOMETHASONE DIPROPIONATE\FORMOTEROL FUMARATE\GLYCOPYRROLATE [Concomitant]
     Active Substance: BECLOMETHASONE DIPROPIONATE\FORMOTEROL FUMARATE\GLYCOPYRROLATE
     Dosage: 2 DOSAGE FORM, BID (VIA SPACER.)
     Route: 055
     Dates: start: 20210625
  19. CARBOMER [Concomitant]
     Active Substance: CARBOMER
     Dosage: 2 GTT DROPS, QID
     Route: 050
     Dates: start: 20210625

REACTIONS (1)
  - Swelling face [Recovered/Resolved]

NARRATIVE: CASE EVENT DATE: 20211006
